FAERS Safety Report 4486441-5 (Version None)
Quarter: 2004Q4

REPORT INFORMATION
  Report Type: 
  Country: None (occurrence: None)
  Receive Date: 20041026
  Receipt Date: 20041026
  Transmission Date: 20050328
  Serious: No
  Sender: FDA-Public Use
  Company Number: None

PATIENT
  Age: 54 Year
  Sex: Male
  Weight: 86.1834 kg

DRUGS (5)
  1. CELEBREX [Suspect]
     Dosage: 1 TO 2 DAY ORAL
     Route: 048
  2. VOLTAREN [Concomitant]
  3. CODINE [Concomitant]
  4. ATENOLOL [Concomitant]
  5. PRILOSEC [Concomitant]

REACTIONS (1)
  - DYSPNOEA EXERTIONAL [None]
